FAERS Safety Report 6041743-6 (Version None)
Quarter: 2009Q1

REPORT INFORMATION
  Report Type: 
  Country: None (occurrence: None)
  Receive Date: 20090116
  Receipt Date: 20090106
  Transmission Date: 20090719
  Serious: Yes (Other)
  Sender: FDA-Public Use
  Company Number: US-PFIZER INC-2009152434

PATIENT
  Sex: Female

DRUGS (8)
  1. NEURONTIN [Suspect]
     Indication: NEURALGIA
     Dosage: UNK MG, UNK
  2. LYRICA [Suspect]
     Indication: FIBROMYALGIA
     Dosage: 100 MG, 3X/DAY
     Dates: start: 20080101
  3. LYRICA [Suspect]
     Indication: POST HERPETIC NEURALGIA
  4. PREDNISONE [Suspect]
     Dosage: 40 MG, 1X/DAY
     Dates: start: 20081201
  5. CYCLOSPORINE [Concomitant]
  6. DILAUDID [Concomitant]
  7. DURAGESIC-100 [Concomitant]
     Route: 062
  8. CYMBALTA [Concomitant]

REACTIONS (2)
  - SUICIDAL IDEATION [None]
  - WEIGHT INCREASED [None]
